FAERS Safety Report 12244139 (Version 2)
Quarter: 2016Q2

REPORT INFORMATION
  Report Type: Spontaneous
  Country: US (occurrence: US)
  Receive Date: 20160406
  Receipt Date: 20160421
  Transmission Date: 20160815
  Serious: No
  Sender: FDA-Public Use
  Company Number: US-JNJFOC-20160306611

PATIENT
  Sex: Female

DRUGS (1)
  1. SPORANOX [Suspect]
     Active Substance: ITRACONAZOLE
     Indication: ACUTE PULMONARY HISTOPLASMOSIS
     Route: 048
     Dates: start: 201602

REACTIONS (9)
  - Nausea [Unknown]
  - Weight decreased [Unknown]
  - Lymphadenopathy [Not Recovered/Not Resolved]
  - Cerebral disorder [Unknown]
  - Skin discolouration [Unknown]
  - Abnormal behaviour [Unknown]
  - Asthenia [Unknown]
  - Vomiting [Unknown]
  - Confusional state [Unknown]
